FAERS Safety Report 7658255-6 (Version None)
Quarter: 2011Q3

REPORT INFORMATION
  Report Type: 
  Country: None (occurrence: None)
  Receive Date: 20110804
  Receipt Date: 20110804
  Transmission Date: 20111222
  Serious: Yes (Other)
  Sender: FDA-Public Use
  Company Number: None

PATIENT
  Sex: Male
  Weight: 72.1219 kg

DRUGS (1)
  1. PRISTIQ [Suspect]
     Indication: PANIC DISORDER
     Dosage: 50MG 1 ORAL
     Route: 048
     Dates: start: 20110512, end: 20110726

REACTIONS (3)
  - PANIC ATTACK [None]
  - ANXIETY [None]
  - THINKING ABNORMAL [None]
